FAERS Safety Report 9995022 (Version 2)
Quarter: 2014Q2

REPORT INFORMATION
  Report Type: Spontaneous
  Country: DE (occurrence: DE)
  Receive Date: 20140311
  Receipt Date: 20140404
  Transmission Date: 20141212
  Serious: Yes (Other)
  Sender: FDA-Public Use
  Company Number: DE-JNJFOC-20140204696

PATIENT
  Age: 74 Year
  Sex: Male
  Weight: 85 kg

DRUGS (1)
  1. NICORETTE SPRAY [Suspect]
     Indication: SMOKING CESSATION THERAPY
     Route: 048
     Dates: start: 20140203, end: 20140203

REACTIONS (1)
  - Angioedema [Recovered/Resolved]
